FAERS Safety Report 15429048 (Version 1)
Quarter: 2018Q3

REPORT INFORMATION
  Report Type: Spontaneous
  Country: US (occurrence: US)
  Receive Date: 20180926
  Receipt Date: 20180926
  Transmission Date: 20181010
  Serious: No
  Sender: FDA-Public Use
  Company Number: US-PFIZER INC-2018383667

PATIENT
  Age: 50 Year
  Sex: Female

DRUGS (1)
  1. GENOTROPIN [Suspect]
     Active Substance: SOMATROPIN
     Dosage: 0.4 MG, DAILY

REACTIONS (16)
  - Blood cholesterol increased [Unknown]
  - Blood glucose increased [Unknown]
  - Very low density lipoprotein increased [Unknown]
  - Blood urea decreased [Unknown]
  - Blood calcium increased [Unknown]
  - Non-high-density lipoprotein cholesterol increased [Unknown]
  - Total cholesterol/HDL ratio decreased [Unknown]
  - Anion gap increased [Unknown]
  - Low density lipoprotein increased [Unknown]
  - Blood potassium decreased [Unknown]
  - High density lipoprotein increased [Unknown]
  - Glycosylated haemoglobin increased [Unknown]
  - Blood triglycerides increased [Unknown]
  - Protein total decreased [Unknown]
  - Cortisol decreased [Unknown]
  - Blood prolactin increased [Unknown]

NARRATIVE: CASE EVENT DATE: 20170216
